FAERS Safety Report 14228044 (Version 1)
Quarter: 2017Q4

REPORT INFORMATION
  Report Type: Report from Study
  Country: US (occurrence: US)
  Receive Date: 20171127
  Receipt Date: 20171127
  Transmission Date: 20180321
  Serious: Yes (Death, Hospitalization)
  Sender: FDA-Public Use
  Company Number: US-ACTELION-A-US2017-162779

PATIENT
  Age: 71 Year
  Sex: Male
  Weight: 126.98 kg

DRUGS (7)
  1. METFORMIN [Concomitant]
     Active Substance: METFORMIN HYDROCHLORIDE
  2. GABAPENTIN. [Concomitant]
     Active Substance: GABAPENTIN
  3. ATORVASTATIN [Concomitant]
     Active Substance: ATORVASTATIN
  4. OPSUMIT [Suspect]
     Active Substance: MACITENTAN
     Indication: PULMONARY ARTERIAL HYPERTENSION
     Dosage: 10 MG, QD
     Route: 048
     Dates: start: 20171003, end: 20171018
  5. FUROSEMIDE. [Concomitant]
     Active Substance: FUROSEMIDE
  6. INSULIN [Concomitant]
     Active Substance: INSULIN NOS
  7. VIAGRA [Concomitant]
     Active Substance: SILDENAFIL CITRATE
     Dosage: UNK
     Dates: start: 201706

REACTIONS (9)
  - Asthenia [Unknown]
  - Cellulitis [Unknown]
  - Unevaluable event [Unknown]
  - Pulmonary hypertension [Fatal]
  - Disease progression [Fatal]
  - Malaise [Unknown]
  - Lung infection [Unknown]
  - Fall [Recovered/Resolved]
  - Drug dose omission [Recovered/Resolved]

NARRATIVE: CASE EVENT DATE: 2017
